FAERS Safety Report 18071232 (Version 1)
Quarter: 2020Q3

REPORT INFORMATION
  Report Type: Spontaneous
  Country: US (occurrence: US)
  Receive Date: 20200725
  Receipt Date: 20200725
  Transmission Date: 20201103
  Serious: Yes (Hospitalization)
  Sender: FDA-Public Use
  Company Number: None

PATIENT
  Age: 44 Year
  Sex: Female
  Weight: 75.6 kg

DRUGS (7)
  1. BLUMEN ADVANCED HAND SANITIZER [Suspect]
     Active Substance: ALCOHOL
     Indication: INFECTION PROPHYLAXIS
     Dosage: ?          QUANTITY:3 OUNCE(S);?
     Route: 061
     Dates: start: 20200410, end: 20200720
  2. NATURE MADE B12 ONE A DAY [Concomitant]
  3. TYLENOL [Concomitant]
     Active Substance: ACETAMINOPHEN
  4. ONE A DAY MULTIVITAMINS [Concomitant]
  5. FERROUS SULF [Concomitant]
     Active Substance: FERROUS SULFATE
  6. MELOXICAM. [Concomitant]
     Active Substance: MELOXICAM
  7. ALBUTEROL. [Concomitant]
     Active Substance: ALBUTEROL

REACTIONS (6)
  - Vision blurred [None]
  - Headache [None]
  - Dizziness [None]
  - Impaired work ability [None]
  - Nausea [None]
  - Feeling abnormal [None]

NARRATIVE: CASE EVENT DATE: 20200711
